FAERS Safety Report 8560257-2 (Version None)
Quarter: 2012Q3

REPORT INFORMATION
  Report Type: 
  Country: None (occurrence: None)
  Receive Date: 20120802
  Receipt Date: 20120726
  Transmission Date: 20120928
  Serious: Yes (Hospitalization)
  Sender: FDA-Public Use
  Company Number: JP-UCBSA-062772

PATIENT
  Age: 5 Year
  Sex: Male

DRUGS (9)
  1. KEPPRA [Suspect]
     Indication: MYOCLONIC EPILEPSY
     Route: 048
  2. VALPROATE SODIUM [Concomitant]
     Dosage: DAILY DOSE:500 MG
     Route: 048
  3. KEPPRA [Suspect]
     Dosage: 650 MG/DAY
     Route: 048
  4. KEPPRA [Suspect]
     Dosage: 650 MG/DAY
     Route: 048
  5. KEPPRA [Suspect]
     Indication: EPILEPSY
     Route: 048
  6. KEPPRA [Suspect]
     Dosage: 500 MG/DAY
     Route: 048
  7. CLOBAZAM [Concomitant]
     Dosage: DAILY DOSE:10 MG
     Route: 048
  8. TOPIRAMATE [Concomitant]
     Dosage: DAILY DOSE:45 MG
     Route: 048
  9. KEPPRA [Suspect]
     Dosage: 500 MG/DAY
     Route: 048

REACTIONS (4)
  - VOMITING [None]
  - LISTLESS [None]
  - DECREASED APPETITE [None]
  - WEIGHT DECREASED [None]
